FAERS Safety Report 8620165-5 (Version None)
Quarter: 2012Q3

REPORT INFORMATION
  Report Type: 
  Country: None (occurrence: None)
  Receive Date: 20120824
  Receipt Date: 20120817
  Transmission Date: 20120928
  Serious: Yes (Hospitalization)
  Sender: FDA-Public Use
  Company Number: US-PFIZER INC-2012090632

PATIENT
  Age: 68 Year
  Sex: Female
  Weight: 81.633 kg

DRUGS (4)
  1. LYRICA [Suspect]
     Indication: NEUROPATHY PERIPHERAL
     Dosage: 150 MG, 2X/DAY
  2. LYRICA [Suspect]
     Dosage: 150 MG, 2X/DAY
     Route: 048
  3. LYRICA [Suspect]
     Dosage: 150 MG, 3X/DAY
     Route: 048
     Dates: start: 20100101
  4. LYRICA [Suspect]
     Dosage: 150 MG, 1X/DAY
     Route: 048

REACTIONS (11)
  - MALAISE [None]
  - BLOOD GLUCOSE INCREASED [None]
  - APHAGIA [None]
  - MEMORY IMPAIRMENT [None]
  - WEIGHT INCREASED [None]
  - VOMITING [None]
  - CONFUSIONAL STATE [None]
  - MYOCARDIAL INFARCTION [None]
  - CEREBRAL HAEMORRHAGE [None]
  - CEREBROVASCULAR ACCIDENT [None]
  - DYSGEUSIA [None]
